FAERS Safety Report 4529555-3 (Version None)
Quarter: 2004Q4

REPORT INFORMATION
  Report Type: 
  Country: None (occurrence: None)
  Receive Date: 20041216
  Receipt Date: 20041015
  Transmission Date: 20050328
  Serious: Yes (Other)
  Sender: FDA-Public Use
  Company Number: US-MERCK-0410USA02395

PATIENT
  Age: 20 Month
  Sex: Male
  Weight: 15 kg

DRUGS (3)
  1. SINGULAIR [Suspect]
     Indication: ASTHMA
     Route: 048
     Dates: start: 20040902, end: 20040928
  2. BACTRIM [Concomitant]
     Route: 065
  3. BROVEX [Concomitant]
     Indication: NASAL CONGESTION
     Route: 048
     Dates: start: 20040902

REACTIONS (3)
  - CONVULSION [None]
  - DYSKINESIA [None]
  - EYE ROLLING [None]
